FAERS Safety Report 5261447-7 (Version None)
Quarter: 2007Q1

REPORT INFORMATION
  Report Type: 
  Country: None (occurrence: None)
  Receive Date: 20070307
  Receipt Date: 20070219
  Transmission Date: 20070707
  Serious: Yes (Life-Threatening, Hospitalization)
  Sender: FDA-Public Use
  Company Number: 2007US000290

PATIENT
  Age: 35 Year
  Sex: Female

DRUGS (7)
  1. AMBISOME [Suspect]
     Indication: CRYPTOCOCCOSIS
     Dosage: SEE IMAGE
     Route: 042
     Dates: start: 20060921, end: 20060928
  2. AMBISOME [Suspect]
     Indication: CRYPTOCOCCOSIS
     Dosage: SEE IMAGE
     Route: 042
     Dates: start: 20060928, end: 20061002
  3. TRUVADA [Suspect]
     Indication: HIV INFECTION
     Dosage: 1 DF, UID/QD, ORAL
     Route: 048
     Dates: start: 20060221
  4. ANCOTIL (FLUCYTOSINE) [Suspect]
     Dosage: 3 G, UID/QD, ORAL
     Route: 048
     Dates: start: 20060921, end: 20061002
  5. EFAVIRENZ [Suspect]
     Dosage: UNK, UNK, ORAL
     Route: 048
     Dates: start: 20060221
  6. BAKTAR (SULFAMETHOXAZOLE, TRIMETHOPRIM) [Concomitant]
  7. AZITHROMYCIN [Concomitant]

REACTIONS (1)
  - BRAIN HERNIATION [None]
